FAERS Safety Report 14162556 (Version 1)
Quarter: 2017Q4

REPORT INFORMATION
  Report Type: Spontaneous
  Country: FR (occurrence: FR)
  Receive Date: 20171106
  Receipt Date: 20171106
  Transmission Date: 20180321
  Serious: Yes (Hospitalization)
  Sender: FDA-Public Use
  Company Number: FR-MERCK KGAA-2033333

PATIENT
  Age: 41 Year
  Sex: Female

DRUGS (1)
  1. NOVOTHYROX [Suspect]
     Active Substance: LEVOTHYROXINE SODIUM
     Indication: HYPOTHYROIDISM
     Route: 048

REACTIONS (10)
  - Weight decreased [Recovering/Resolving]
  - Blood thyroid stimulating hormone increased [Recovering/Resolving]
  - Affective disorder [Recovering/Resolving]
  - Vertigo [Recovering/Resolving]
  - Asthenia [Recovering/Resolving]
  - Hot flush [Recovering/Resolving]
  - Headache [Recovering/Resolving]
  - Sciatica [Recovering/Resolving]
  - Nausea [Recovering/Resolving]
  - Palpitations [Recovering/Resolving]

NARRATIVE: CASE EVENT DATE: 201704
